FAERS Safety Report 14599847 (Version 1)
Quarter: 2018Q1

REPORT INFORMATION
  Report Type: Spontaneous
  Country: US (occurrence: US)
  Receive Date: 20180304
  Receipt Date: 20180304
  Transmission Date: 20180509
  Serious: No
  Sender: FDA-Public Use
  Company Number: None

PATIENT
  Age: 77 Year
  Sex: Male
  Weight: 75.6 kg

DRUGS (11)
  1. LISINOPRIL. [Concomitant]
     Active Substance: LISINOPRIL
  2. NITROGLYCERIN. [Concomitant]
     Active Substance: NITROGLYCERIN
  3. ASPIRIN. [Concomitant]
     Active Substance: ASPIRIN
  4. TAMSULOSIN [Concomitant]
     Active Substance: TAMSULOSIN
  5. ATORVASTATIN [Concomitant]
     Active Substance: ATORVASTATIN
  6. AREDS 2 [Concomitant]
     Active Substance: MINERALS\VITAMINS
  7. COQ10 [Concomitant]
     Active Substance: UBIDECARENONE
  8. BRILINTA [Suspect]
     Active Substance: TICAGRELOR
     Indication: THROMBOSIS
     Dosage: ?          QUANTITY:60 TABLET(S);?
     Route: 048
     Dates: start: 20180222, end: 20180304
  9. METOPROLOL. [Concomitant]
     Active Substance: METOPROLOL
  10. FINASTERIDE. [Concomitant]
     Active Substance: FINASTERIDE
  11. ISOSORB [Concomitant]

REACTIONS (2)
  - Blood urine present [None]
  - Penile pain [None]

NARRATIVE: CASE EVENT DATE: 20180304
